FAERS Safety Report 17409562 (Version 2)
Quarter: 2020Q1

REPORT INFORMATION
  Report Type: Spontaneous
  Country: BE (occurrence: BE)
  Receive Date: 20200212
  Receipt Date: 20200212
  Transmission Date: 20200409
  Serious: Yes (Life-Threatening, Hospitalization)
  Sender: FDA-Public Use
  Company Number: BE-JNJFOC-20200210201

PATIENT
  Age: 61 Year
  Sex: Male
  Weight: 95 kg

DRUGS (1)
  1. CANAGLIFLOZIN [Suspect]
     Active Substance: CANAGLIFLOZIN
     Indication: TYPE 2 DIABETES MELLITUS
     Dosage: 1 * DAY RESTART MEDICATION TWO DAYS POSTOPERATIVELY AFTER MAJOR CARDIAC SURGERY WITH INSUFFICIENT
     Route: 048
     Dates: start: 20200118

REACTIONS (1)
  - Euglycaemic diabetic ketoacidosis [Unknown]

NARRATIVE: CASE EVENT DATE: 20200120
